FAERS Safety Report 22833028 (Version 2)
Quarter: 2023Q4

REPORT INFORMATION
  Report Type: Spontaneous
  Country: US (occurrence: US)
  Receive Date: 20230817
  Receipt Date: 20231019
  Transmission Date: 20240110
  Serious: Yes (Hospitalization)
  Sender: FDA-Public Use
  Company Number: US-PFIZER INC-PV202300140726

PATIENT
  Age: 77 Year
  Sex: Female

DRUGS (2)
  1. IBRANCE [Suspect]
     Active Substance: PALBOCICLIB
     Dosage: 100 MG
  2. XGEVA [Concomitant]
     Active Substance: DENOSUMAB
     Dosage: UNK

REACTIONS (3)
  - Arthralgia [Unknown]
  - Pain in extremity [Unknown]
  - Thyroid disorder [Unknown]
